FAERS Safety Report 5584315-X (Version None)
Quarter: 2008Q1

REPORT INFORMATION
  Report Type: 
  Country: None (occurrence: None)
  Receive Date: 20080108
  Receipt Date: 20080103
  Transmission Date: 20080703
  Serious: No
  Sender: FDA-Public Use
  Company Number: US-JNJFOC-20080100929

PATIENT
  Sex: Male
  Weight: 113.4 kg

DRUGS (3)
  1. INVEGA [Suspect]
     Indication: BIPOLAR DISORDER
     Route: 048
  2. LITHIUM [Concomitant]
     Indication: BIPOLAR DISORDER
  3. ZOLPIDEM TARTRATE [Concomitant]
     Indication: SLEEP DISORDER

REACTIONS (2)
  - LIBIDO DECREASED [None]
  - SEMEN ABNORMAL [None]
